FAERS Safety Report 4735295-8 (Version None)
Quarter: 2005Q3

REPORT INFORMATION
  Report Type: 
  Country: None (occurrence: None)
  Receive Date: 20050803
  Receipt Date: 20050715
  Transmission Date: 20060218
  Serious: Yes (Death, Other)
  Sender: FDA-Public Use
  Company Number: USA0507102978

PATIENT
  Age: 86 Year
  Sex: Female

DRUGS (8)
  1. FORTEO [Suspect]
     Indication: OSTEOPOROSIS
     Dates: start: 20050601
  2. ALPRAZOLAM [Concomitant]
  3. PROCRIT [Concomitant]
  4. LOTENSIN [Concomitant]
  5. QUININE SULFATE [Concomitant]
  6. COUMADIN [Concomitant]
  7. NEURONTIN [Concomitant]
  8. VITAMINS NOS [Concomitant]

REACTIONS (1)
  - CARDIAC FAILURE CONGESTIVE [None]
